FAERS Safety Report 25445789 (Version 1)
Quarter: 2025Q2

REPORT INFORMATION
  Report Type: Report from Study
  Country: US (occurrence: US)
  Receive Date: 20250617
  Receipt Date: 20250617
  Transmission Date: 20250717
  Serious: Yes (Hospitalization)
  Sender: DR REDDYS
  Company Number: US-DRL-USA-USA/2025/06/008739

PATIENT
  Sex: Female
  Weight: 90.9 kg

DRUGS (2)
  1. JAVYGTOR [Suspect]
     Active Substance: SAPROPTERIN DIHYDROCHLORIDE
     Indication: Hyperphenylalaninaemia
     Dosage: MIX THREE 500 MG POWDER PACKETS IN 8 OUNCES OF FLUID AND TAKE DAILY IN THE MORNING. TOTAL DAILY DOSE
     Route: 065
  2. vitamin D-400 [Concomitant]
     Indication: Product used for unknown indication
     Route: 065

REACTIONS (1)
  - Hospitalisation [Unknown]
